FAERS Safety Report 12762323 (Version 1)
Quarter: 2016Q3

REPORT INFORMATION
  Report Type: Spontaneous
  Country: US (occurrence: US)
  Receive Date: 20160920
  Receipt Date: 20160920
  Transmission Date: 20161109
  Serious: Yes (Hospitalization)
  Sender: FDA-Public Use
  Company Number: US-GLAXOSMITHKLINE-US2016136070

PATIENT
  Age: 55 Year
  Sex: Female

DRUGS (13)
  1. ALBUTEROL. [Suspect]
     Active Substance: ALBUTEROL
     Indication: CHRONIC OBSTRUCTIVE PULMONARY DISEASE
  2. AVELOX [Concomitant]
     Active Substance: MOXIFLOXACIN HYDROCHLORIDE
  3. METOLAZONE. [Concomitant]
     Active Substance: METOLAZONE
  4. BROVANA [Concomitant]
     Active Substance: ARFORMOTEROL TARTRATE
  5. FLONASE [Concomitant]
     Active Substance: FLUTICASONE PROPIONATE
  6. SINGULAIR [Concomitant]
     Active Substance: MONTELUKAST SODIUM
  7. CETIRIZINE [Concomitant]
     Active Substance: CETIRIZINE HYDROCHLORIDE
  8. FUROSEMIDE. [Concomitant]
     Active Substance: FUROSEMIDE
  9. VALSARTAN. [Concomitant]
     Active Substance: VALSARTAN
  10. ALBUTEROL. [Suspect]
     Active Substance: ALBUTEROL
     Indication: ASTHMA
     Dosage: 2 PUFF(S), VA
     Route: 055
  11. OXYGEN. [Concomitant]
     Active Substance: OXYGEN
  12. PREDNISONE. [Concomitant]
     Active Substance: PREDNISONE
  13. PULMICORT TURBUHALER [Concomitant]
     Active Substance: BUDESONIDE

REACTIONS (7)
  - Dyspnoea [Not Recovered/Not Resolved]
  - Fluid overload [Not Recovered/Not Resolved]
  - Micturition frequency decreased [Unknown]
  - Overdose [Not Recovered/Not Resolved]
  - Productive cough [Not Recovered/Not Resolved]
  - Oxygen saturation decreased [Unknown]
  - Treatment noncompliance [Not Recovered/Not Resolved]

NARRATIVE: CASE EVENT DATE: 201608
